FAERS Safety Report 15725127 (Version 1)
Quarter: 2018Q4

REPORT INFORMATION
  Report Type: Spontaneous
  Country: US (occurrence: US)
  Receive Date: 20181215
  Receipt Date: 20181215
  Transmission Date: 20190205
  Serious: No
  Sender: FDA-Public Use
  Company Number: US-ELI_LILLY_AND_COMPANY-US201812005441

PATIENT
  Sex: Male

DRUGS (3)
  1. HUMULIN 70/30 [Suspect]
     Active Substance: INSULIN HUMAN
     Indication: PRODUCT USED FOR UNKNOWN INDICATION
     Dosage: 28 U, BID (TAKING THIS MEDICATION FOR A LONG TIME) (USED FOR 15 DAYS)
     Route: 065
  2. NOVOLIN [Concomitant]
     Active Substance: INSULIN HUMAN
     Indication: PRODUCT USED FOR UNKNOWN INDICATION
     Dosage: UNK UNK, UNKNOWN
     Route: 065
     Dates: start: 2015
  3. HUMULIN 70/30 [Suspect]
     Active Substance: INSULIN HUMAN
     Dosage: 28 U, BID (TAKING THIS MEDICATION FOR A LONG TIME) (USED FOR 15 DAYS AND ALMOST GONE) (C7751538A)
     Route: 065

REACTIONS (3)
  - Vision blurred [Unknown]
  - Myopia [Unknown]
  - Hypermetropia [Unknown]
